FAERS Safety Report 6910779-2 (Version None)
Quarter: 2010Q3

REPORT INFORMATION
  Report Type: 
  Country: None (occurrence: None)
  Receive Date: 20100806
  Receipt Date: 20100617
  Transmission Date: 20110219
  Serious: Yes (Other)
  Sender: FDA-Public Use
  Company Number: PHFR2010GB01275

PATIENT
  Sex: Male

DRUGS (1)
  1. CLOZARIL [Suspect]
     Indication: SCHIZOPHRENIA
     Dosage: 125MG AM, 250MG PM
     Route: 048
     Dates: start: 20060610

REACTIONS (4)
  - ALCOHOL ABUSE [None]
  - DRUG ABUSE [None]
  - DRUG DOSE OMISSION [None]
  - MALAISE [None]
